FAERS Safety Report 15997340 (Version 2)
Quarter: 2019Q1

REPORT INFORMATION
  Report Type: Report from Study
  Country: FR (occurrence: FR)
  Receive Date: 20190222
  Receipt Date: 20190301
  Transmission Date: 20190418
  Serious: Yes (Hospitalization)
  Sender: FDA-Public Use
  Company Number: FR-ASTRAZENECA-2019SE29318

PATIENT
  Age: 86 Year
  Sex: Female

DRUGS (16)
  1. ELIQUIS [Concomitant]
     Active Substance: APIXABAN
     Indication: EMBOLISM
     Route: 048
  2. KARDEGIC [Concomitant]
     Active Substance: ASPIRIN DL-LYSINE
     Indication: PROPHYLAXIS
     Route: 048
     Dates: end: 20190212
  3. IRBESARTAN. [Concomitant]
     Active Substance: IRBESARTAN
     Indication: HYPERTENSION
     Route: 048
  4. UVEDOSE [Concomitant]
     Active Substance: CHOLECALCIFEROL
     Indication: VITAMIN D
     Route: 048
  5. MEDI4736 [Suspect]
     Active Substance: DURVALUMAB
     Indication: OVARIAN CANCER
     Dosage: 1500 MG
     Route: 042
     Dates: start: 20190124, end: 20190124
  6. PANTOPRAZOLE [Concomitant]
     Active Substance: PANTOPRAZOLE
     Indication: GASTRIC DISORDER
     Route: 048
  7. DEXERYL [Concomitant]
     Indication: DRY SKIN
     Dosage: DOSE 1 APLLICATION PRN
     Route: 048
  8. ATORVASTATIN [Concomitant]
     Active Substance: ATORVASTATIN
     Indication: HYPERCHOLESTEROLAEMIA
     Route: 048
  9. OLAPARIB. [Suspect]
     Active Substance: OLAPARIB
     Indication: OVARIAN CANCER
     Route: 048
  10. PREGABALIN. [Concomitant]
     Active Substance: PREGABALIN
     Indication: PAIN IN EXTREMITY
     Route: 048
  11. CODOLIPRANE [Concomitant]
     Active Substance: ACETAMINOPHEN\CODEINE PHOSPHATE
     Indication: PAIN
     Dosage: PRN
     Route: 048
  12. FUROSEMIDE. [Concomitant]
     Active Substance: FUROSEMIDE
     Route: 048
  13. MAG 2 [Concomitant]
     Active Substance: MAGNESIUM CHLORIDE
     Indication: HYPOMAGNESAEMIA
     Dosage: 1 CAPSULE BID
     Route: 048
  14. METFORMIN [Concomitant]
     Active Substance: METFORMIN HYDROCHLORIDE
     Indication: DIABETES MELLITUS
     Route: 048
     Dates: start: 20190112
  15. IPRATROPIUM BROMIDE\FENOTEROL HYDROBROMIDE [Concomitant]
     Active Substance: FENOTEROL HYDROBROMIDE\IPRATROPIUM BROMIDE
     Indication: BRONCHITIS CHRONIC
     Dosage: 2 PUFF TWO TIMES A DAY
     Route: 055
  16. VENTOLINE [Concomitant]
     Active Substance: ALBUTEROL
     Indication: BRONCHITIS CHRONIC
     Dosage: 2 PUFF PRN
     Route: 055

REACTIONS (1)
  - Atrial fibrillation [Recovered/Resolved]

NARRATIVE: CASE EVENT DATE: 20190215
